FAERS Safety Report 19424668 (Version 1)
Quarter: 2021Q2

REPORT INFORMATION
  Report Type: Report from Study
  Country: GB (occurrence: GB)
  Receive Date: 20210617
  Receipt Date: 20210617
  Transmission Date: 20210717
  Serious: Yes (Hospitalization)
  Sender: FDA-Public Use
  Company Number: GB-SAMSUNG BIOEPIS-SB-2021-14500

PATIENT
  Sex: Male

DRUGS (1)
  1. IMRALDI [Suspect]
     Active Substance: ADALIMUMAB
     Indication: PSORIASIS
     Route: 058
     Dates: start: 202103

REACTIONS (6)
  - Hypertension [Unknown]
  - Fatigue [Unknown]
  - Anxiety [Unknown]
  - Panic disorder [Unknown]
  - Dyspnoea [Unknown]
  - Joint swelling [Unknown]
